FAERS Safety Report 5055168-3 (Version None)
Quarter: 2006Q3

REPORT INFORMATION
  Report Type: 
  Country: None (occurrence: None)
  Receive Date: 20060719
  Receipt Date: 20050413
  Transmission Date: 20061208
  Serious: Yes (Life-Threatening, Other)
  Sender: FDA-Public Use
  Company Number: GBWYE594618APR05

PATIENT
  Sex: Female
  Weight: 87 kg

DRUGS (6)
  1. ENBREL [Suspect]
     Indication: RHEUMATOID ARTHRITIS
     Route: 058
     Dates: start: 20040226, end: 20040601
  2. METHOTREXATE [Suspect]
  3. PREDNISOLONE [Concomitant]
     Indication: RHEUMATOID ARTHRITIS
     Dosage: 7.5MG
     Route: 048
     Dates: start: 20020801, end: 20040201
  4. AZATHIOPRINE SODIUM [Concomitant]
     Indication: RHEUMATOID ARTHRITIS
     Route: 048
     Dates: start: 20021201, end: 20040301
  5. PARACETAMOL [Concomitant]
  6. LORAZEPAM [Concomitant]

REACTIONS (6)
  - NAUSEA [None]
  - NON-HODGKIN'S LYMPHOMA [None]
  - ORBITAL OEDEMA [None]
  - RASH [None]
  - RETINAL OEDEMA [None]
  - VOMITING [None]
